FAERS Safety Report 17451889 (Version 4)
Quarter: 2021Q3

REPORT INFORMATION
  Report Type: Spontaneous
  Country: US (occurrence: US)
  Receive Date: 20200224
  Receipt Date: 20210707
  Transmission Date: 20211014
  Serious: Yes (Hospitalization, Other)
  Sender: FDA-Public Use
  Company Number: US-PFIZER INC-2020066403

PATIENT
  Age: 66 Year
  Sex: Female

DRUGS (5)
  1. BUPROPION. [Interacting]
     Active Substance: BUPROPION
     Indication: SMOKING CESSATION THERAPY
     Dosage: 150 MG, 1X/DAY XL (DAILY, EXTENDED?RELEASE, LOW DOSE)
  2. LEVOTHYROXINE. [Concomitant]
     Active Substance: LEVOTHYROXINE
     Indication: HYPOTHYROIDISM
     Dosage: UNK, ALTERNATE DAY (137?150 MG ALTERNATING DAILY.)
  3. ALPRAZOLAM. [Suspect]
     Active Substance: ALPRAZOLAM
     Indication: ANXIETY
     Dosage: 1 UG, 3X/DAY
  4. LORAZEPAM. [Concomitant]
     Active Substance: LORAZEPAM
     Indication: RESTLESSNESS
  5. LORAZEPAM. [Concomitant]
     Active Substance: LORAZEPAM
     Indication: AGITATION
     Dosage: 2 MG, UNK
     Route: 042

REACTIONS (4)
  - Seizure [Recovering/Resolving]
  - Withdrawal syndrome [Recovering/Resolving]
  - Drug interaction [Recovering/Resolving]
  - Convulsive threshold lowered [Recovering/Resolving]
